FAERS Safety Report 13883886 (Version 1)
Quarter: 2017Q3

REPORT INFORMATION
  Report Type: Spontaneous
  Country: US (occurrence: US)
  Receive Date: 20170815
  Receipt Date: 20170815
  Transmission Date: 20171127
  Serious: No
  Sender: FDA-Public Use
  Company Number: None

PATIENT
  Age: 76 Year
  Sex: Male

DRUGS (7)
  1. INDAPAMIDE. [Concomitant]
     Active Substance: INDAPAMIDE
  2. POTASSIUM CHLORIDE. [Concomitant]
     Active Substance: POTASSIUM CHLORIDE
  3. OMEPRAZOLE. [Concomitant]
     Active Substance: OMEPRAZOLE
  4. GLEEVEC [Suspect]
     Active Substance: IMATINIB MESYLATE
     Indication: CONNECTIVE TISSUE NEOPLASM
     Route: 048
     Dates: start: 20160512, end: 20170815
  5. ENALAPRIL [Concomitant]
     Active Substance: ENALAPRIL
  6. ASPIRIN. [Concomitant]
     Active Substance: ASPIRIN
  7. LOPRESSOR [Concomitant]
     Active Substance: METOPROLOL TARTRATE

REACTIONS (2)
  - Therapy change [None]
  - Lethargy [None]

NARRATIVE: CASE EVENT DATE: 20170815
